FAERS Safety Report 8002902-6 (Version None)
Quarter: 2011Q4

REPORT INFORMATION
  Report Type: 
  Country: None (occurrence: None)
  Receive Date: 20111222
  Receipt Date: 20110302
  Transmission Date: 20120403
  Serious: No
  Sender: FDA-Public Use
  Company Number: US-GLAXOSMITHKLINE-A0916361A

PATIENT
  Age: 71 Year
  Sex: Male

DRUGS (12)
  1. ASPIRIN [Concomitant]
  2. CARVEDILOL [Concomitant]
  3. NEURONTIN [Concomitant]
  4. VERAMYST [Concomitant]
  5. VENTOLIN [Concomitant]
  6. OTC VITAMINS [Concomitant]
  7. ADVAIR DISKUS 100/50 [Concomitant]
  8. AVODART [Suspect]
     Indication: BENIGN PROSTATIC HYPERPLASIA
     Dosage: 1CAP PER DAY
     Route: 048
     Dates: start: 20101101
  9. NEXIUM [Concomitant]
  10. ACCUPRIL [Concomitant]
  11. HUMULIN 70/30 [Concomitant]
  12. LIPITOR [Concomitant]

REACTIONS (2)
  - ADVERSE EVENT [None]
  - BURNING SENSATION [None]
